FAERS Safety Report 5846458-2 (Version None)
Quarter: 2008Q3

REPORT INFORMATION
  Report Type: 
  Country: None (occurrence: None)
  Receive Date: 20080815
  Receipt Date: 20080806
  Transmission Date: 20090109
  Serious: Yes (Hospitalization, Other)
  Sender: FDA-Public Use
  Company Number: US-JNJFOC-20080801333

PATIENT
  Sex: Female
  Weight: 48.8 kg

DRUGS (5)
  1. REMICADE [Suspect]
     Route: 042
  2. REMICADE [Suspect]
     Indication: INFLAMMATORY BOWEL DISEASE
     Route: 042
  3. CLINDAMYCIN HCL [Concomitant]
  4. METRONIDZOLE [Concomitant]
  5. CIPRO [Concomitant]

REACTIONS (2)
  - ENTEROCUTANEOUS FISTULA [None]
  - PELVIC ABSCESS [None]
